FAERS Safety Report 4669758-0 (Version None)
Quarter: 2005Q2

REPORT INFORMATION
  Report Type: 
  Country: None (occurrence: None)
  Receive Date: 20050523
  Receipt Date: 20050513
  Transmission Date: 20051028
  Serious: Yes (Hospitalization, Other)
  Sender: FDA-Public Use
  Company Number: KH-2005-0016598

PATIENT
  Age: 45 Year
  Sex: Male

DRUGS (4)
  1. OXYCONTIN [Suspect]
     Indication: PAIN
     Dosage: ORAL
     Route: 048
  2. OXYCODONE HCL [Suspect]
     Indication: PAIN
     Dosage: ORAL
     Route: 048
  3. NORTRIPTYLINE HCL [Suspect]
     Indication: PAIN
     Dosage: ORAL
     Route: 048
  4. LORAZEPAM [Suspect]
     Indication: PAIN
     Dosage: ORAL
     Route: 048

REACTIONS (10)
  - AGGRESSION [None]
  - INCOHERENT [None]
  - INTENTIONAL MISUSE [None]
  - INTENTIONAL SELF-INJURY [None]
  - MULTIPLE DRUG OVERDOSE [None]
  - NEUROLOGICAL EXAMINATION ABNORMAL [None]
  - PUPILLARY REFLEX IMPAIRED [None]
  - RESPIRATORY RATE INCREASED [None]
  - SINUS TACHYCARDIA [None]
  - SOMNOLENCE [None]
